FAERS Safety Report 21273019 (Version 5)
Quarter: 2022Q3

REPORT INFORMATION
  Report Type: Spontaneous
  Country: US (occurrence: US)
  Receive Date: 20220831
  Receipt Date: 20220930
  Transmission Date: 20221026
  Serious: Yes (Other)
  Sender: FDA-Public Use
  Company Number: US-UNITED THERAPEUTICS-UNT-2022-019195

PATIENT
  Sex: Female
  Weight: 73.016 kg

DRUGS (7)
  1. ORENITRAM [Suspect]
     Active Substance: TREPROSTINIL
     Indication: Pulmonary arterial hypertension
     Dosage: UNK
     Route: 048
     Dates: start: 20210212
  2. ORENITRAM [Suspect]
     Active Substance: TREPROSTINIL
     Dosage: 5 MG (1 TABLET OF 5 MG), Q8H
     Route: 048
  3. ORENITRAM [Suspect]
     Active Substance: TREPROSTINIL
     Indication: Pulmonary arterial hypertension
     Dosage: UNK
     Route: 048
  4. ADEMPAS [Interacting]
     Active Substance: RIOCIGUAT
     Indication: Product used for unknown indication
     Dosage: 1.5 MG, TID
     Route: 065
  5. ADEMPAS [Interacting]
     Active Substance: RIOCIGUAT
     Dosage: 1 MG, TID
     Route: 065
  6. OPSUMIT [Interacting]
     Active Substance: MACITENTAN
     Indication: Product used for unknown indication
     Dosage: UNK
     Route: 065
  7. PAXLOVID [Interacting]
     Active Substance: NIRMATRELVIR\RITONAVIR
     Indication: COVID-19
     Dosage: UNK
     Route: 065
     Dates: start: 2022, end: 2022

REACTIONS (18)
  - Hallucination [Recovering/Resolving]
  - COVID-19 [Recovering/Resolving]
  - Abdominal pain [Unknown]
  - Nausea [Unknown]
  - Flushing [Unknown]
  - Nasal congestion [Recovering/Resolving]
  - Drug interaction [Unknown]
  - Headache [Not Recovered/Not Resolved]
  - Dyspnoea exertional [Not Recovered/Not Resolved]
  - Pulmonary arterial pressure abnormal [Not Recovered/Not Resolved]
  - Dyspepsia [Unknown]
  - Gastrointestinal hypomotility [Unknown]
  - Constipation [Unknown]
  - Inadequate diet [Unknown]
  - Cough [Recovering/Resolving]
  - Fatigue [Recovering/Resolving]
  - Intracardiac pressure increased [Unknown]
  - Therapy non-responder [Unknown]

NARRATIVE: CASE EVENT DATE: 20220101
